FAERS Safety Report 12581718 (Version 4)
Quarter: 2017Q2

REPORT INFORMATION
  Report Type: Spontaneous
  Country: CA (occurrence: CA)
  Receive Date: 20160722
  Receipt Date: 20170404
  Transmission Date: 20170830
  Serious: Yes (Hospitalization, Other)
  Sender: FDA-Public Use
  Company Number: CA-ROCHE-1797832

PATIENT
  Age: 66 Year
  Sex: Female

DRUGS (3)
  1. XOLAIR [Suspect]
     Active Substance: OMALIZUMAB
     Indication: ASTHMA
     Route: 058
     Dates: start: 20051121
  2. VENTOLIN [Concomitant]
     Active Substance: ALBUTEROL SULFATE
     Indication: PERFUME SENSITIVITY
     Dosage: 2 DF, QW (2 PUFFS)
     Route: 065
  3. XOLAIR [Suspect]
     Active Substance: OMALIZUMAB
     Route: 058
     Dates: start: 20170316

REACTIONS (5)
  - Fatigue [Unknown]
  - Forced expiratory volume decreased [Unknown]
  - Intestinal perforation [Unknown]
  - Middle insomnia [Unknown]
  - Asthma [Unknown]

NARRATIVE: CASE EVENT DATE: 20170114
